FAERS Safety Report 7351086-6 (Version None)
Quarter: 2011Q1

REPORT INFORMATION
  Report Type: 
  Country: None (occurrence: None)
  Receive Date: 20110314
  Receipt Date: 20110308
  Transmission Date: 20110831
  Serious: Yes (Other)
  Sender: FDA-Public Use
  Company Number: US-PFIZER INC-2010156059

PATIENT
  Sex: Female

DRUGS (1)
  1. LYRICA [Suspect]
     Indication: FIBROMYALGIA
     Dosage: 600 MG

REACTIONS (10)
  - WEIGHT INCREASED [None]
  - TOOTH LOSS [None]
  - FALL [None]
  - DYSPHEMIA [None]
  - OEDEMA PERIPHERAL [None]
  - FEELING ABNORMAL [None]
  - DYSLEXIA [None]
  - JOINT SWELLING [None]
  - WITHDRAWAL SYNDROME [None]
  - AMNESIA [None]
